FAERS Safety Report 4989870-6 (Version None)
Quarter: 2006Q2

REPORT INFORMATION
  Report Type: 
  Country: None (occurrence: None)
  Receive Date: 20060428
  Receipt Date: 20060419
  Transmission Date: 20061013
  Serious: Yes (Other)
  Sender: FDA-Public Use
  Company Number: HQWYE878820APR06

PATIENT
  Age: 23 Year
  Sex: Male

DRUGS (4)
  1. EFFEXOR [Suspect]
     Dosage: 75 MG 1X PER 1 DAY ORAL
     Route: 048
  2. ALCOHOL (ETHANOL, ) [Suspect]
     Dosage: ORAL
     Route: 048
  3. LOVAN (FLUOXETINE HYDROCHLORIDE, ) [Suspect]
     Dosage: ORAL
     Route: 048
  4. SEREPAX (OXAZEPAM, UNSPEC) [Suspect]
     Dosage: ORAL
     Route: 048

REACTIONS (6)
  - AGGRESSION [None]
  - AGITATION [None]
  - MIDDLE INSOMNIA [None]
  - SLEEP DISORDER [None]
  - SUICIDE ATTEMPT [None]
  - WEIGHT DECREASED [None]
